FAERS Safety Report 25345780 (Version 1)
Quarter: 2025Q2

REPORT INFORMATION
  Report Type: Report from Study
  Country: US (occurrence: US)
  Receive Date: 20250522
  Receipt Date: 20250522
  Transmission Date: 20250716
  Serious: Yes (Hospitalization)
  Sender: TAKEDA
  Company Number: US-TAKEDA-2025TUS046741

PATIENT
  Age: 72 Year
  Sex: Male

DRUGS (31)
  1. TEDUGLUTIDE [Suspect]
     Active Substance: TEDUGLUTIDE
     Indication: Short-bowel syndrome
     Dosage: 3.6 MILLIGRAM, QD
     Dates: start: 20210329
  2. TEDUGLUTIDE [Suspect]
     Active Substance: TEDUGLUTIDE
  3. TEDUGLUTIDE [Suspect]
     Active Substance: TEDUGLUTIDE
  4. TEDUGLUTIDE [Suspect]
     Active Substance: TEDUGLUTIDE
  5. CREON [Concomitant]
     Active Substance: PANCRELIPASE AMYLASE\PANCRELIPASE LIPASE\PANCRELIPASE PROTEASE
     Indication: Prophylaxis
     Dosage: 24000 INTERNATIONAL UNIT, TID
     Dates: start: 20180807
  6. BACLOFEN [Concomitant]
     Active Substance: BACLOFEN
     Indication: Gastrointestinal pain
     Dosage: 10 MILLIGRAM, TID
     Dates: start: 20191211
  7. DICYCLOMINE [Concomitant]
     Active Substance: DICYCLOMINE HYDROCHLORIDE
     Indication: Abdominal pain
     Dosage: 10 MILLIGRAM, TID
     Dates: start: 20210527
  8. FLUTICASONE PROPIONATE [Concomitant]
     Active Substance: FLUTICASONE PROPIONATE
     Indication: Hypersensitivity
     Dosage: 50 MICROGRAM, QD
     Route: 061
     Dates: start: 20180615
  9. ONDANSETRON [Concomitant]
     Active Substance: ONDANSETRON
     Indication: Nausea
     Dosage: 8 MILLIGRAM, BID
     Dates: start: 20210603
  10. ONDANSETRON [Concomitant]
     Active Substance: ONDANSETRON
     Dosage: 8 MILLIGRAM, BID
  11. OPIUM TINCTURE [Concomitant]
     Active Substance: MORPHINE
     Indication: Short-bowel syndrome
     Dosage: 0.6 MILLILITER, Q4HR
     Dates: start: 20200529
  12. CYCLOBENZAPRINE [Concomitant]
     Active Substance: CYCLOBENZAPRINE
     Indication: Muscle spasms
     Dosage: 10 MILLIGRAM, TID
     Dates: start: 20210807
  13. ASPIRIN [Concomitant]
     Active Substance: ASPIRIN
     Indication: Prophylaxis
     Dosage: 81 MILLIGRAM, QD
     Dates: start: 20200306
  14. METOPROLOL TARTRATE [Concomitant]
     Active Substance: METOPROLOL TARTRATE
     Indication: Hypertension
     Dosage: 25 MILLIGRAM, QD
     Dates: start: 20210528
  15. PANCRELIPASE [Concomitant]
     Active Substance: PANCRELIPASE
     Indication: Prophylaxis
     Dosage: UNK UNK, TID
     Dates: start: 20191111
  16. METAXALONE [Concomitant]
     Active Substance: METAXALONE
     Indication: Muscle spasms
     Dosage: 800 MILLIGRAM, TID
     Dates: start: 20240715
  17. CARVEDILOL [Concomitant]
     Active Substance: CARVEDILOL
  18. CEPHALEXIN [Concomitant]
     Active Substance: CEPHALEXIN
     Dosage: 500 MILLIGRAM, QID
     Dates: start: 20240724
  19. FERROUS SULFATE [Concomitant]
     Active Substance: FERROUS SULFATE
  20. FLUTICASONE [Concomitant]
     Active Substance: FLUTICASONE
  21. FOLIC ACID [Concomitant]
     Active Substance: FOLIC ACID
     Indication: Prophylaxis
  22. ACETAMINOPHEN\HYDROCODONE [Concomitant]
     Active Substance: ACETAMINOPHEN\HYDROCODONE
  23. LACTOBACILLUS RHAMNOSUS [Concomitant]
     Active Substance: LACTOBACILLUS RHAMNOSUS
     Indication: Probiotic therapy
     Dosage: UNK UNK, QD
     Dates: start: 20200703
  24. LORATADINE [Concomitant]
     Active Substance: LORATADINE
     Indication: Multiple allergies
     Dosage: 10 MILLIGRAM, QD
     Dates: start: 20200603
  25. MAGNESIUM OXIDE [Concomitant]
     Active Substance: MAGNESIUM OXIDE
     Indication: Dyspepsia
     Dosage: 240 MILLIGRAM, TID
     Dates: start: 20200603
  26. NAPROXEN [Concomitant]
     Active Substance: NAPROXEN
     Dosage: 500 MILLIGRAM, BID
     Dates: start: 20240715
  27. OMEPRAZOLE [Concomitant]
     Active Substance: OMEPRAZOLE
     Indication: Dyspepsia
  28. OPIUM [Concomitant]
     Active Substance: OPIUM
  29. POTASSIUM CHLORIDE [Concomitant]
     Active Substance: POTASSIUM CHLORIDE
     Indication: Prophylaxis
  30. TADALAFIL [Concomitant]
     Active Substance: TADALAFIL
     Indication: Erectile dysfunction
     Dosage: 10 MILLIGRAM, QD
     Dates: start: 20231004
  31. TAMSULOSIN [Concomitant]
     Active Substance: TAMSULOSIN

REACTIONS (1)
  - Stoma site haemorrhage [Recovered/Resolved]

NARRATIVE: CASE EVENT DATE: 20250419
